FAERS Safety Report 10682674 (Version 1)
Quarter: 2014Q4

REPORT INFORMATION
  Report Type: Spontaneous
  Country: US (occurrence: None)
  Receive Date: 20141209
  Receipt Date: 20141209
  Transmission Date: 20150529
  Serious: Yes (Hospitalization, Other)
  Sender: FDA-Public Use
  Company Number: 401453

PATIENT
  Age: 41 Year
  Sex: Female

DRUGS (2)
  1. NOVOLOG [Suspect]
     Active Substance: INSULIN ASPART
     Indication: TYPE 1 DIABETES MELLITUS
     Route: 058
     Dates: start: 2013
  2. LANTUS (INSULIN GLARRGINE) [Concomitant]

REACTIONS (4)
  - Device malfunction [None]
  - Incorrect dose administered by device [None]
  - Diabetic ketoacidosis [None]
  - Blood glucose increased [None]

NARRATIVE: CASE EVENT DATE: 2013
